FAERS Safety Report 12146008 (Version 1)
Quarter: 2016Q1

REPORT INFORMATION
  Report Type: Spontaneous
  Country: US (occurrence: US)
  Receive Date: 20160304
  Receipt Date: 20160304
  Transmission Date: 20160526
  Serious: No
  Sender: FDA-Public Use
  Company Number: US-PERRIGO-15US004861

PATIENT
  Age: 68 Year
  Sex: Male
  Weight: 117.91 kg

DRUGS (3)
  1. DRUGS USED IN BENIGN PROSTATIC HYPERTROPHY [Concomitant]
     Indication: PROSTATOMEGALY
     Dosage: UNK
     Route: 065
  2. NAPROXEN SODIUM 220 MG 368 [Suspect]
     Active Substance: NAPROXEN SODIUM
     Indication: ARTHRALGIA
     Dosage: 220 MG, PRN
     Route: 048
     Dates: start: 20150429, end: 20150507
  3. ANTIHYPERTENSIVES [Concomitant]
     Active Substance: UNSPECIFIED INGREDIENT
     Indication: HYPERTENSION
     Dosage: UNK
     Route: 065

REACTIONS (1)
  - Peripheral swelling [Unknown]

NARRATIVE: CASE EVENT DATE: 20150506
